FAERS Safety Report 7219604-6 (Version None)
Quarter: 2011Q1

REPORT INFORMATION
  Report Type: 
  Country: None (occurrence: None)
  Receive Date: 20110103
  Receipt Date: 20101227
  Transmission Date: 20110831
  Serious: Yes (Other)
  Sender: FDA-Public Use
  Company Number: 2010SP066320

PATIENT
  Age: 20 Year
  Sex: Female
  Weight: 41.7309 kg

DRUGS (2)
  1. IMPLANON [Suspect]
     Indication: MENSTRUATION IRREGULAR
     Dates: start: 20101116
  2. SEROQUEL [Concomitant]

REACTIONS (4)
  - HAEMOPTYSIS [None]
  - VAGINAL HAEMORRHAGE [None]
  - UPPER RESPIRATORY TRACT INFECTION [None]
  - SINUSITIS [None]
